FAERS Safety Report 7841944-8 (Version None)
Quarter: 2011Q4

REPORT INFORMATION
  Report Type: 
  Country: None (occurrence: None)
  Receive Date: 20111025
  Receipt Date: 20111021
  Transmission Date: 20120403
  Serious: No
  Sender: FDA-Public Use
  Company Number: PHEH2011US04475

PATIENT
  Sex: Female

DRUGS (9)
  1. TASIGNA [Suspect]
     Dosage: 150 MG, BID
     Route: 048
  2. OPTIVE LUBRICANT EYE DROPS [Concomitant]
     Indication: DIZZINESS
  3. MULTI-VITAMINS [Concomitant]
  4. HYDROCHLOROTHIAZIDE [Concomitant]
  5. TASIGNA [Suspect]
     Dosage: 150 MG DAILY
  6. SYNTHROID [Concomitant]
  7. OMEPRAZOLE [Concomitant]
  8. FISH OIL [Concomitant]
  9. VITAMIN D [Concomitant]

REACTIONS (2)
  - ABDOMINAL DISCOMFORT [None]
  - ALOPECIA [None]
